FAERS Safety Report 5806775-9 (Version None)
Quarter: 2008Q3

REPORT INFORMATION
  Report Type: 
  Country: None (occurrence: None)
  Receive Date: 20080711
  Receipt Date: 20080708
  Transmission Date: 20090109
  Serious: Yes (Hospitalization)
  Sender: FDA-Public Use
  Company Number: US-JNJFOC-20080702262

PATIENT
  Sex: Female

DRUGS (1)
  1. DORIBAX [Suspect]
     Indication: INFECTION
     Route: 041

REACTIONS (1)
  - ADVERSE EVENT [None]
